FAERS Safety Report 8588456-4 (Version None)
Quarter: 2012Q3

REPORT INFORMATION
  Report Type: 
  Country: None (occurrence: None)
  Receive Date: 20120813
  Receipt Date: 20120802
  Transmission Date: 20120928
  Serious: Yes (Life-Threatening, Other)
  Sender: FDA-Public Use
  Company Number: CA-JNJFOC-20120801847

PATIENT
  Sex: Female
  Weight: 74.9 kg

DRUGS (7)
  1. TYLENOL [Concomitant]
     Indication: PREMEDICATION
     Route: 048
  2. SOLU-CORTEF [Concomitant]
     Indication: PREMEDICATION
     Route: 042
  3. ASACOL [Concomitant]
     Route: 065
  4. BENADRYL [Concomitant]
     Indication: PREMEDICATION
     Route: 042
  5. PREDNISONE TAB [Concomitant]
     Route: 065
  6. REMICADE [Suspect]
     Indication: CROHN'S DISEASE
     Route: 042
     Dates: start: 20120615
  7. REMICADE [Suspect]
     Dosage: 3RD INFUSION
     Route: 042
     Dates: start: 20120802

REACTIONS (7)
  - DYSPNOEA [None]
  - MUSCLE SPASMS [None]
  - FLUSHING [None]
  - NAUSEA [None]
  - BLOOD PRESSURE INCREASED [None]
  - INFUSION RELATED REACTION [None]
  - ERYTHEMA [None]
